FAERS Safety Report 5342406-2 (Version None)
Quarter: 2007Q2

REPORT INFORMATION
  Report Type: 
  Country: None (occurrence: None)
  Receive Date: 20070416
  Receipt Date: 20070222
  Transmission Date: 20071010
  Serious: No
  Sender: FDA-Public Use
  Company Number: 2007SP000610

PATIENT
  Age: 53 Year
  Sex: Female
  Weight: 90.7194 kg

DRUGS (14)
  1. LUNESTA [Suspect]
     Indication: INSOMNIA
     Dosage: 3 MG; HS; ORAL
     Route: 048
     Dates: start: 20060101
  2. SYNTHROID [Concomitant]
  3. HEPARIN [Concomitant]
  4. SILVER [Concomitant]
  5. HORMONES AND RELATED [Concomitant]
  6. AGENTS [Concomitant]
  7. VITAMIN B [Concomitant]
  8. MAGNESIUM SULFATE [Concomitant]
  9. VITAMIN E [Concomitant]
  10. RELAXIN [Concomitant]
  11. MONOLAURIN [Concomitant]
  12. CALCIUM CITRATE [Concomitant]
  13. VITAMIN CAP [Concomitant]
  14. ENZYME PREPARATIONS [Concomitant]

REACTIONS (6)
  - AMMONIA INCREASED [None]
  - BLOOD CHLORIDE INCREASED [None]
  - BLOOD TEST ABNORMAL [None]
  - CONFUSIONAL STATE [None]
  - LEARNING DISORDER [None]
  - MEMORY IMPAIRMENT [None]
